FAERS Safety Report 5408518-X (Version None)
Quarter: 2007Q3

REPORT INFORMATION
  Report Type: 
  Country: None (occurrence: None)
  Receive Date: 20070806
  Receipt Date: 20070705
  Transmission Date: 20080115
  Serious: Yes (Other)
  Sender: FDA-Public Use
  Company Number: 2007US001748

PATIENT
  Age: 28 Year
  Sex: Male

DRUGS (4)
  1. PROGRAF [Suspect]
     Indication: PSORIASIS
     Dosage: 1 %, BID, TOPICAL
     Route: 061
  2. STAVUDINE [Concomitant]
  3. LAMIVUDINE [Concomitant]
  4. EFAVIRENZ [Concomitant]

REACTIONS (5)
  - CHEST PAIN [None]
  - DRUG LEVEL BELOW THERAPEUTIC [None]
  - DYSPNOEA [None]
  - HAEMOPTYSIS [None]
  - KAPOSI'S SARCOMA [None]
